FAERS Safety Report 5054061-X (Version None)
Quarter: 2006Q3

REPORT INFORMATION
  Report Type: 
  Country: None (occurrence: None)
  Receive Date: 20060718
  Receipt Date: 20060501
  Transmission Date: 20061208
  Serious: Yes (Other)
  Sender: FDA-Public Use
  Company Number: US-BRISTOL-MYERS SQUIBB COMPANY-13364237

PATIENT
  Age: 77 Year
  Sex: Male

DRUGS (8)
  1. ERBITUX [Suspect]
     Indication: HYPOPHARYNGEAL CANCER
     Dosage: FIRST DOSE (400 MG).
     Route: 042
     Dates: start: 20060420, end: 20060420
  2. SPIRONOLACTONE [Concomitant]
  3. PRAVACHOL [Concomitant]
  4. LOPRESSOR [Concomitant]
  5. ALLOPURINOL [Concomitant]
  6. ZANTAC [Concomitant]
  7. ASPIRIN [Concomitant]
  8. LASIX [Concomitant]

REACTIONS (4)
  - HAEMATURIA [None]
  - HYPERSENSITIVITY [None]
  - HYPOTENSION [None]
  - INFUSION RELATED REACTION [None]
